FAERS Safety Report 6600397-8 (Version None)
Quarter: 2010Q1

REPORT INFORMATION
  Report Type: 
  Country: None (occurrence: None)
  Receive Date: 20100217
  Receipt Date: 20100126
  Transmission Date: 20100710
  Serious: Yes (Hospitalization)
  Sender: FDA-Public Use
  Company Number: 2010AP000166

PATIENT
  Age: 35 Year
  Sex: Female

DRUGS (10)
  1. PAROXETINE HCL [Suspect]
     Indication: DEPRESSION
     Dosage: 20 MG; 10 MG
     Dates: start: 20030331, end: 20030430
  2. PAROXETINE HCL [Suspect]
     Indication: DEPRESSION
     Dosage: 20 MG; 10 MG
     Dates: start: 20030430, end: 20030501
  3. PAROXETINE HCL [Suspect]
     Indication: DEPRESSION
     Dosage: 20 MG; 10 MG
     Dates: start: 20030501, end: 20040827
  4. LAMOTRIGINE [Concomitant]
  5. LITHIUM CARBONATE [Concomitant]
  6. OLANZAPINE [Concomitant]
  7. TOPIRAMATE [Concomitant]
  8. ZOPICLONE (ZOPICLONE) [Concomitant]
  9. FLUOXETINE [Concomitant]
  10. SERTRALINE HYDROCHLORIDE [Concomitant]

REACTIONS (6)
  - AGGRESSION [None]
  - ANXIETY [None]
  - BIPOLAR DISORDER [None]
  - DEPRESSION [None]
  - REFUSAL OF TREATMENT BY PATIENT [None]
  - SUICIDE ATTEMPT [None]
